FAERS Safety Report 5971149 (Version 4)
Quarter: 2012Q4

REPORT INFORMATION
  Report Type: Report from Study
  Country: GB (occurrence: UG)
  Receive Date: 20060127
  Receipt Date: 20121005
  Transmission Date: 20130627
  Serious: Yes (Death, Life-Threatening, Hospitalization)
  Sender: FDA-Public Use
  Company Number: UG-GILEAD-2005-0009028

PATIENT
  Age: 22 None
  Sex: Female

DRUGS (5)
  1. TENOFOVIR DISOPROXIL FUMARATE [Suspect]
     Indication: HIV INFECTION
     Dosage: UNK
     Dates: start: 20031205, end: 20051031
  2. COMBIVIR [Concomitant]
     Indication: HIV INFECTION
     Dates: start: 20030822, end: 20031127
  3. COMBIVIR [Concomitant]
     Dates: start: 20030710, end: 20030808
  4. LAMIVUDINE [Concomitant]
     Dates: start: 20031205, end: 20051121
  5. STAVUDINE [Concomitant]
     Dates: start: 20031205, end: 20051121

REACTIONS (1)
  - Renal failure [Fatal]
